FAERS Safety Report 16041138 (Version 1)
Quarter: 2019Q1

REPORT INFORMATION
  Report Type: Spontaneous
  Country: FR (occurrence: FR)
  Receive Date: 20190306
  Receipt Date: 20190306
  Transmission Date: 20190418
  Serious: Yes (Other)
  Sender: FDA-Public Use
  Company Number: PHHY2019FR047061

PATIENT

DRUGS (6)
  1. BLEOMYCIN [Suspect]
     Active Substance: BLEOMYCIN SULFATE
     Indication: FOETAL EXPOSURE DURING PREGNANCY
     Route: 064
  2. ONDANSETRON [Suspect]
     Active Substance: ONDANSETRON
     Indication: FOETAL EXPOSURE DURING PREGNANCY
     Dosage: UNK
     Route: 064
  3. DOXORUBICIN [Suspect]
     Active Substance: DOXORUBICIN
     Indication: FOETAL EXPOSURE DURING PREGNANCY
     Route: 064
  4. DEXAMETHASONE. [Suspect]
     Active Substance: DEXAMETHASONE
     Indication: FOETAL EXPOSURE DURING PREGNANCY
     Route: 064
  5. DACARBAZINE. [Suspect]
     Active Substance: DACARBAZINE
     Indication: FOETAL EXPOSURE DURING PREGNANCY
     Dosage: UNK
     Route: 064
  6. VINBLASTINE [Suspect]
     Active Substance: VINBLASTINE
     Indication: FOETAL EXPOSURE DURING PREGNANCY
     Route: 064

REACTIONS (2)
  - Premature baby [Unknown]
  - Foetal exposure during pregnancy [Unknown]
